FAERS Safety Report 5589194-2 (Version None)
Quarter: 2008Q1

REPORT INFORMATION
  Report Type: 
  Country: None (occurrence: None)
  Receive Date: 20080109
  Receipt Date: 20071228
  Transmission Date: 20080703
  Serious: Yes (Death, Hospitalization)
  Sender: FDA-Public Use
  Company Number: CHNY2007GB04109

PATIENT
  Age: 25 Year
  Sex: Male

DRUGS (10)
  1. IBUPROFEN [Suspect]
     Indication: PAIN IN EXTREMITY
  2. SULFAMETHOXAZOLE AND TRIMETHOPRIM [Suspect]
     Indication: PROPHYLAXIS
  3. LOPERAMIDE [Concomitant]
  4. CLARITHROMYCIN [Suspect]
     Indication: CHEST DISCOMFORT
  5. CIPROFLOXACIN [Suspect]
     Indication: CHEST DISCOMFORT
  6. COMBIVIR [Suspect]
  7. EFAVIRENZ [Suspect]
  8. LAMIVUDINE [Suspect]
  9. NEVIRAPINE [Suspect]
  10. TENOFOVIR(TENOFOVIR) [Suspect]

REACTIONS (10)
  - AGITATION [None]
  - BIOPSY BILE DUCT ABNORMAL [None]
  - CHOLESTASIS [None]
  - CONFUSIONAL STATE [None]
  - HAEMOGLOBIN DECREASED [None]
  - HEPATOCELLULAR INJURY [None]
  - INFLAMMATION [None]
  - PAIN IN EXTREMITY [None]
  - SEPSIS [None]
  - VANISHING BILE DUCT SYNDROME [None]
